FAERS Safety Report 9745678 (Version 1)
Quarter: 2013Q4

REPORT INFORMATION
  Report Type: Spontaneous
  Country: US (occurrence: None)
  Receive Date: 20131206
  Receipt Date: 20131206
  Transmission Date: 20140711
  Serious: Yes (Hospitalization)
  Sender: FDA-Public Use
  Company Number: None

PATIENT
  Age: 37 Year
  Sex: Male
  Weight: 143 kg

DRUGS (2)
  1. CYTARABINE [Suspect]
     Dates: end: 20131129
  2. DAUNORUBICIN [Suspect]
     Dates: end: 20131124

REACTIONS (1)
  - Blood creatinine increased [None]
